FAERS Safety Report 7024485-X (Version None)
Quarter: 2010Q4

REPORT INFORMATION
  Report Type: 
  Country: None (occurrence: None)
  Receive Date: 20101001
  Receipt Date: 20100929
  Transmission Date: 20110411
  Serious: Yes (Hospitalization)
  Sender: FDA-Public Use
  Company Number: A0836229A

PATIENT
  Age: 48 Year
  Sex: Male

DRUGS (6)
  1. AVANDIA [Suspect]
     Dosage: 1TAB TWICE PER DAY
     Route: 065
     Dates: start: 20060117, end: 20070116
  2. AVANDAMET [Suspect]
     Dosage: 1TAB TWICE PER DAY
     Route: 048
     Dates: start: 20050719, end: 20070628
  3. INSULIN [Concomitant]
  4. INSULIN [Concomitant]
  5. TOPROL-XL [Concomitant]
  6. BENICAR [Concomitant]

REACTIONS (6)
  - ARTERIAL DISORDER [None]
  - ARTERIAL OCCLUSIVE DISEASE [None]
  - CARDIAC DISORDER [None]
  - CORONARY ARTERY DISEASE [None]
  - MYOCARDIAL INFARCTION [None]
  - SLEEP APNOEA SYNDROME [None]
